FAERS Safety Report 6727273-4 (Version None)
Quarter: 2010Q2

REPORT INFORMATION
  Report Type: 
  Country: None (occurrence: None)
  Receive Date: 20100517
  Receipt Date: 20100507
  Transmission Date: 20101027
  Serious: Yes (Hospitalization)
  Sender: FDA-Public Use
  Company Number: TR-MILLENNIUM PHARMACEUTICALS, INC.-2010-02442

PATIENT

DRUGS (3)
  1. VELCADE [Suspect]
     Indication: MULTIPLE MYELOMA
  2. VELCADE [Suspect]
     Dosage: UNK
  3. DEXAMETHASONE [Concomitant]
     Indication: MULTIPLE MYELOMA

REACTIONS (5)
  - FEMORAL NECK FRACTURE [None]
  - HYPERCALCAEMIA [None]
  - HYPERVISCOSITY SYNDROME [None]
  - PULMONARY EMBOLISM [None]
  - SPINAL COMPRESSION FRACTURE [None]
